FAERS Safety Report 7937463-0 (Version None)
Quarter: 2011Q4

REPORT INFORMATION
  Report Type: 
  Country: None (occurrence: None)
  Receive Date: 20111123
  Receipt Date: 20111010
  Transmission Date: 20120403
  Serious: Yes (Hospitalization)
  Sender: FDA-Public Use
  Company Number: PHHO2011IT019441

PATIENT
  Sex: Female
  Weight: 67 kg

DRUGS (4)
  1. FLUOROURACIL [Suspect]
     Indication: BREAST CANCER
     Dosage: 1000 MG, UNK
     Route: 042
     Dates: start: 20110819
  2. CYCLOPHOSPHAMIDE [Suspect]
     Dosage: 1000 MG, UNK
     Route: 048
     Dates: start: 20110819
  3. NO TREATMENT RECEIVED [Suspect]
     Indication: BREAST CANCER
     Dosage: NO TREATMENT
  4. METHOTREXATE [Suspect]
     Indication: BREAST CANCER
     Dosage: 69 MG, UNK
     Route: 042
     Dates: start: 20110819

REACTIONS (1)
  - FEBRILE NEUTROPENIA [None]
